FAERS Safety Report 8539680-8 (Version None)
Quarter: 2012Q3

REPORT INFORMATION
  Report Type: 
  Country: None (occurrence: None)
  Receive Date: 20120726
  Receipt Date: 20111213
  Transmission Date: 20120928
  Serious: No
  Sender: FDA-Public Use
  Company Number: US-ASTRAZENECA-2006UW27364

PATIENT
  Age: 42 Year
  Sex: Female

DRUGS (20)
  1. RISPERDAL [Suspect]
     Route: 065
     Dates: start: 20060701, end: 20070101
  2. ZYPREXA [Suspect]
     Indication: MENTAL DISORDER
     Route: 065
     Dates: start: 19981201, end: 20060601
  3. RISPERDAL [Suspect]
     Indication: SCHIZOPHRENIA
     Route: 065
     Dates: start: 19941123
  4. RANITIDINE [Concomitant]
     Indication: GASTROOESOPHAGEAL REFLUX DISEASE
     Dates: start: 20050817
  5. TRICOR [Concomitant]
     Dates: start: 20040511
  6. VESICARE [Concomitant]
     Dates: start: 20071004
  7. KLONOPIN [Concomitant]
     Indication: MENTAL DISORDER
     Dates: start: 20000208
  8. RANITIDINE [Concomitant]
     Indication: GASTRITIS
     Dates: start: 20050817
  9. NIASPAN [Concomitant]
     Route: 048
     Dates: start: 20040511
  10. LITHIUM CARBONATE [Concomitant]
     Dates: start: 19941123
  11. ZYPREXA [Suspect]
     Route: 065
     Dates: start: 20000208
  12. COGENTIN [Concomitant]
     Dates: start: 19941123
  13. MAVIK [Concomitant]
     Dates: start: 20050817
  14. LISINOPRIL [Concomitant]
     Dates: start: 20050817
  15. SEROQUEL [Suspect]
     Dosage: 100 MG TO 400 MG DAILY
     Route: 048
     Dates: start: 19991013
  16. SEROQUEL [Suspect]
     Dosage: 25MG, 100MG, 200MG AND 300MG
     Route: 048
     Dates: start: 20001001, end: 20020301
  17. ENALAPRIL MALEATE [Concomitant]
     Indication: HYPERTENSION
     Dates: start: 20050817
  18. ASPIRIN [Concomitant]
     Dates: start: 20040511
  19. PAXIL [Concomitant]
     Indication: MENTAL DISORDER
     Dates: start: 20000208
  20. LITHOBID [Concomitant]
     Indication: MENTAL DISORDER
     Dates: start: 20000208

REACTIONS (4)
  - METABOLIC SYNDROME [None]
  - HYPERTENSION [None]
  - TYPE 2 DIABETES MELLITUS [None]
  - VISION BLURRED [None]
